FAERS Safety Report 9233548 (Version 2)
Quarter: 2013Q2

REPORT INFORMATION
  Report Type: Spontaneous
  Country: US (occurrence: US)
  Receive Date: 20130416
  Receipt Date: 20130503
  Transmission Date: 20140414
  Serious: No
  Sender: FDA-Public Use
  Company Number: US-009507513-1304USA007155

PATIENT
  Sex: Male

DRUGS (10)
  1. DULERA [Suspect]
     Indication: ASTHMA
     Dosage: 2 DF, BID (2 PUFFS, TWICE A DAY)
     Route: 055
     Dates: start: 20121128, end: 20130401
  2. PROAIR HFA [Concomitant]
     Dosage: UNK
  3. DYMISTA [Concomitant]
     Dosage: UNK
  4. SINGULAIR [Concomitant]
     Dosage: UNK
  5. CRESTOR [Concomitant]
     Dosage: UNK
  6. BYSTOLIC [Concomitant]
     Dosage: UNK
  7. LISINOPRIL [Concomitant]
     Dosage: UNK
  8. COLACE [Concomitant]
  9. ASPIRIN [Concomitant]
     Dosage: UNK
  10. GABAPENTIN [Concomitant]
     Dosage: UNK

REACTIONS (1)
  - Dysphonia [Recovering/Resolving]
